FAERS Safety Report 4728268-2 (Version None)
Quarter: 2005Q3

REPORT INFORMATION
  Report Type: 
  Country: None (occurrence: None)
  Receive Date: 20050727
  Receipt Date: 20050713
  Transmission Date: 20060218
  Serious: Yes (Hospitalization)
  Sender: FDA-Public Use
  Company Number: GBR-2005-0001793

PATIENT
  Age: 3 Year
  Sex: Female
  Weight: 14 kg

DRUGS (10)
  1. MORPHINE [Suspect]
     Indication: MUCOSAL INFLAMMATION
     Dosage: 10 MG, BID, ORAL
     Route: 048
     Dates: start: 20050615
  2. AQUEOUS CREAM(WHITE SOFT PARAFFIN, EMULSIFYING WAX, PARAFFIN, LIQUID) [Suspect]
     Indication: SWELLING FACE
  3. ORAMORPH SR [Suspect]
     Indication: MUCOSAL INFLAMMATION
     Dosage: 2-4 TABLETS, ORAL
     Route: 048
     Dates: start: 20050614, end: 20050615
  4. FLUCONAZOLE [Concomitant]
  5. CO-TRIMOXAZOLE(TRIMETHOPRAM, SULFAMETHOXAZOLE) [Concomitant]
  6. CHLORPHENIRAMINE TAB [Concomitant]
  7. CODEINE [Concomitant]
  8. MEROPENEM (MEROPENEM) [Concomitant]
  9. OMEPRAZOLE [Concomitant]
  10. TEICOPLANIN(TEICOPLANIN) [Concomitant]

REACTIONS (5)
  - DERMATITIS EXFOLIATIVE [None]
  - ERYTHEMA [None]
  - OEDEMA [None]
  - PRURITUS [None]
  - RASH [None]
